FAERS Safety Report 5788371-5 (Version None)
Quarter: 2008Q2

REPORT INFORMATION
  Report Type: 
  Country: None (occurrence: None)
  Receive Date: 20080625
  Receipt Date: 20080613
  Transmission Date: 20081010
  Serious: Yes (Other)
  Sender: FDA-Public Use
  Company Number: GR-PFIZER INC-2008050768

PATIENT
  Age: 68 Year
  Sex: Female

DRUGS (2)
  1. LYRICA [Suspect]
     Indication: NEURALGIA
     Dosage: DAILY DOSE:350MG
     Route: 048
     Dates: start: 20080501, end: 20080601
  2. EXEMESTANE [Concomitant]
     Dates: start: 20080201, end: 20080601

REACTIONS (3)
  - ASPHYXIA [None]
  - BALANCE DISORDER [None]
  - GAIT DISTURBANCE [None]
